FAERS Safety Report 7384610-8 (Version None)
Quarter: 2011Q1

REPORT INFORMATION
  Report Type: 
  Country: None (occurrence: None)
  Receive Date: 20110330
  Receipt Date: 20110323
  Transmission Date: 20110831
  Serious: Yes (Other)
  Sender: FDA-Public Use
  Company Number: CHPA2011US04404

PATIENT
  Age: 8 Year
  Sex: Female

DRUGS (1)
  1. TRIAMINIC NIGHT TIME COLD + COUGH [Suspect]
     Indication: NASOPHARYNGITIS
     Dosage: 2 TSP, ONCE/SINGLE
     Route: 048

REACTIONS (3)
  - COORDINATION ABNORMAL [None]
  - CONFUSIONAL STATE [None]
  - FALL [None]
